FAERS Safety Report 7271506-5 (Version None)
Quarter: 2011Q1

REPORT INFORMATION
  Report Type: 
  Country: None (occurrence: None)
  Receive Date: 20110203
  Receipt Date: 20101222
  Transmission Date: 20110831
  Serious: Yes (Hospitalization, Other)
  Sender: FDA-Public Use
  Company Number: US-BAYER-201028410NA

PATIENT
  Sex: Female
  Weight: 85 kg

DRUGS (5)
  1. YAZ [Suspect]
     Indication: ORAL CONTRACEPTION
     Dosage: UNK UNK, QD
     Route: 048
     Dates: start: 20070101, end: 20090515
  2. CHERATUSSIN DAC [Concomitant]
     Indication: COUGH
     Dosage: DAILY DOSE 10 ML
     Route: 048
     Dates: start: 20090506
  3. AZITHROMYCIN [Concomitant]
     Indication: INFECTION
     Dosage: 250 MG, UNK
     Route: 048
     Dates: start: 20090506
  4. CITALOPRAM [Concomitant]
     Dosage: DAILY DOSE 40 MG
     Route: 048
     Dates: start: 20090220
  5. YASMIN [Suspect]
     Indication: PRODUCT USED FOR UNKNOWN INDICATION
     Route: 048
     Dates: start: 20060701, end: 20090515

REACTIONS (6)
  - NAUSEA [None]
  - CHOLECYSTITIS [None]
  - VOMITING [None]
  - CHOLECYSTITIS CHRONIC [None]
  - ABDOMINAL PAIN UPPER [None]
  - HEPATIC STEATOSIS [None]
